FAERS Safety Report 7224874-4 (Version None)
Quarter: 2011Q1

REPORT INFORMATION
  Report Type: 
  Country: None (occurrence: None)
  Receive Date: 20110113
  Receipt Date: 20110110
  Transmission Date: 20110831
  Serious: Yes (Other)
  Sender: FDA-Public Use
  Company Number: US-AMGEN-USASP2011001474

PATIENT

DRUGS (1)
  1. ENBREL [Suspect]
     Indication: PSORIATIC ARTHROPATHY
     Dates: start: 20090731, end: 20100901

REACTIONS (5)
  - MULTIPLE SCLEROSIS [None]
  - VISION BLURRED [None]
  - BALANCE DISORDER [None]
  - PSORIATIC ARTHROPATHY [None]
  - SENSATION OF HEAVINESS [None]
